FAERS Safety Report 26061604 (Version 1)
Quarter: 2025Q4

REPORT INFORMATION
  Report Type: Spontaneous
  Country: CN (occurrence: CN)
  Receive Date: 20251118
  Receipt Date: 20251118
  Transmission Date: 20260118
  Serious: Yes (Hospitalization, Other)
  Sender: JOHNSON AND JOHNSON
  Company Number: CN-JNJFOC-20251155284

PATIENT
  Age: 7 Year
  Sex: Male

DRUGS (5)
  1. TOPAMAX [Suspect]
     Active Substance: TOPIRAMATE
     Indication: Epilepsy
     Dosage: LAST APPLICATION DATE: 11-NOV-2025
     Route: 048
     Dates: start: 20250101
  2. PERAMPANEL [Suspect]
     Active Substance: PERAMPANEL
     Indication: Epilepsy
     Dosage: LAST APPLICATION DATE: 11-NOV-2025
     Dates: start: 20250101
  3. LACOSAMIDE [Suspect]
     Active Substance: LACOSAMIDE
     Indication: Epilepsy
     Dosage: LAST APPLICATION DATE: 11-NOV-2025
     Dates: start: 20250101
  4. LAMOTRIGINE [Suspect]
     Active Substance: LAMOTRIGINE
     Indication: Epilepsy
     Dosage: LAST APPLICATION DATE: 11-NOV-2025
     Dates: start: 20250101
  5. CLOBAZAM [Suspect]
     Active Substance: CLOBAZAM
     Indication: Epilepsy
     Dosage: LAST APPLICATION DATE: 11-NOV-2025
     Dates: start: 20250101

REACTIONS (4)
  - Dyskinesia [Unknown]
  - Intellectual disability [Unknown]
  - Epilepsy [Unknown]
  - Myocardial necrosis marker increased [Not Recovered/Not Resolved]

NARRATIVE: CASE EVENT DATE: 20251013
